FAERS Safety Report 5262350-9 (Version None)
Quarter: 2007Q1

REPORT INFORMATION
  Report Type: 
  Country: None (occurrence: None)
  Receive Date: 20070308
  Receipt Date: 20070308
  Transmission Date: 20070707
  Serious: No
  Sender: FDA-Public Use
  Company Number: None

PATIENT
  Age: 14 Year
  Sex: Male
  Weight: 76.6579 kg

DRUGS (1)
  1. RISPERIDONE [Suspect]
     Dosage: 3MG  PO
     Route: 048

REACTIONS (1)
  - VISION BLURRED [None]
